FAERS Safety Report 7390928-5 (Version None)
Quarter: 2011Q2

REPORT INFORMATION
  Report Type: 
  Country: None (occurrence: None)
  Receive Date: 20110404
  Receipt Date: 20100203
  Transmission Date: 20111010
  Serious: No
  Sender: FDA-Public Use
  Company Number: 2010BI004045

PATIENT
  Age: 31 Year
  Sex: Female

DRUGS (1)
  1. TYSABRI [Suspect]
     Indication: MULTIPLE SCLEROSIS
     Route: 042
     Dates: start: 20091014

REACTIONS (5)
  - PARAESTHESIA [None]
  - SOMNOLENCE [None]
  - CONFUSIONAL STATE [None]
  - FATIGUE [None]
  - ANXIETY [None]
